FAERS Safety Report 7719653-5 (Version None)
Quarter: 2011Q3

REPORT INFORMATION
  Report Type: 
  Country: None (occurrence: None)
  Receive Date: 20110830
  Receipt Date: 20110822
  Transmission Date: 20111222
  Serious: Yes (Hospitalization)
  Sender: FDA-Public Use
  Company Number: JP-GILEAD-2011-0043118

PATIENT
  Age: 68 Year
  Sex: Female

DRUGS (3)
  1. EMTRICITABINE/TENOFOVIR DISOPROXIL FUMARATE [Suspect]
     Indication: HIV INFECTION
     Route: 048
  2. REYATAZ [Concomitant]
     Indication: HIV INFECTION
  3. NORVIR [Concomitant]
     Indication: HIV INFECTION
     Route: 048

REACTIONS (2)
  - BASEDOW'S DISEASE [None]
  - TYPE 1 DIABETES MELLITUS [None]
